FAERS Safety Report 8621428-X (Version None)
Quarter: 2012Q3

REPORT INFORMATION
  Report Type: 
  Country: None (occurrence: None)
  Receive Date: 20120824
  Receipt Date: 20120626
  Transmission Date: 20120928
  Serious: No
  Sender: FDA-Public Use
  Company Number: US-ASTRAZENECA-2012SE43174

PATIENT
  Age: 896 Month
  Sex: Female
  Weight: 90.7 kg

DRUGS (4)
  1. UNSPECIFIED HIGH  BLOOD PRESSURE PILL [Concomitant]
     Indication: HYPERTENSION
  2. UNSPECIFIED HIGH CHOLESTEROL PILL [Concomitant]
     Indication: BLOOD CHOLESTEROL INCREASED
  3. FASLODEX [Suspect]
     Indication: BREAST CANCER
     Route: 030
  4. FASLODEX [Suspect]
     Route: 030
     Dates: start: 20120501

REACTIONS (5)
  - PAIN IN EXTREMITY [None]
  - SENSATION OF HEAVINESS [None]
  - DRUG INTOLERANCE [None]
  - OEDEMA PERIPHERAL [None]
  - HYPOAESTHESIA [None]
